FAERS Safety Report 8469935-7 (Version None)
Quarter: 2012Q2

REPORT INFORMATION
  Report Type: 
  Country: None (occurrence: None)
  Receive Date: 20120627
  Receipt Date: 20120618
  Transmission Date: 20120825
  Serious: Yes (Hospitalization)
  Sender: FDA-Public Use
  Company Number: US-BIOGENIDEC-2012BI010525

PATIENT
  Age: 57 Year
  Sex: Male

DRUGS (3)
  1. AVONEX [Suspect]
     Indication: MULTIPLE SCLEROSIS
     Route: 030
     Dates: start: 20010625, end: 20061230
  2. AVONEX [Suspect]
     Route: 030
     Dates: start: 20110214, end: 20120318
  3. MEDICATION (NOS) [Concomitant]

REACTIONS (4)
  - LOWER LIMB FRACTURE [None]
  - ASTHENIA [None]
  - URINARY TRACT INFECTION [None]
  - FALL [None]
